FAERS Safety Report 4947274-6 (Version None)
Quarter: 2006Q1

REPORT INFORMATION
  Report Type: 
  Country: None (occurrence: None)
  Receive Date: 20060313
  Receipt Date: 20060228
  Transmission Date: 20060701
  Serious: Yes (Hospitalization, Other)
  Sender: FDA-Public Use
  Company Number: 2006BH004204

PATIENT
  Age: 29 Year
  Sex: Female
  Weight: 65.7716 kg

DRUGS (13)
  1. PROMETHAZINE [Suspect]
     Indication: MIGRAINE
     Dosage: ONCE; IM
     Route: 030
     Dates: start: 20051208, end: 20051208
  2. PROMETHAZINE [Suspect]
     Indication: MIGRAINE
     Dosage: ONCE; IM
     Route: 030
     Dates: start: 20051216, end: 20051216
  3. PROMETHAZINE [Suspect]
     Indication: MIGRAINE
     Dosage: ONCE; IM
     Route: 030
     Dates: start: 20051218, end: 20051218
  4. DEMEROL [Suspect]
     Dosage: ONCE; IM
     Route: 030
     Dates: start: 20051208, end: 20051208
  5. DEMEROL [Suspect]
     Dosage: ONCE; IM
     Route: 030
     Dates: start: 20051216, end: 20051216
  6. DEMEROL [Suspect]
     Dosage: ONCE; IM
     Route: 030
     Dates: start: 20051218, end: 20051218
  7. ZELNORM [Concomitant]
  8. MULTI-VITAMIN [Concomitant]
  9. DEPAKOTE [Concomitant]
  10. DIAZEPAM [Concomitant]
  11. ZOFRAN [Concomitant]
  12. BENADRYL [Concomitant]
  13. PREDNISONE TAB [Concomitant]

REACTIONS (3)
  - BUTTOCK PAIN [None]
  - CYST [None]
  - INJECTION SITE ABSCESS [None]
